FAERS Safety Report 8459456 (Version 3)
Quarter: 2014Q2

REPORT INFORMATION
  Report Type: Spontaneous
  Country: US (occurrence: US)
  Receive Date: 20120314
  Receipt Date: 20140624
  Transmission Date: 20141212
  Serious: No
  Sender: FDA-Public Use
  Company Number: US-ASTRAZENECA-2011SE42247

PATIENT
  Age: 60 Year
  Sex: Female

DRUGS (3)
  1. NEXIUM [Suspect]
     Route: 048
  2. TOPROL XL [Suspect]
     Route: 048
     Dates: end: 201310
  3. SEROQUEL XR [Suspect]
     Route: 048

REACTIONS (6)
  - Feeling abnormal [Not Recovered/Not Resolved]
  - Obsessive-compulsive disorder [Unknown]
  - Panic attack [Unknown]
  - Malaise [Unknown]
  - Erythema [Not Recovered/Not Resolved]
  - Drug dose omission [Unknown]
